FAERS Safety Report 7608505-7 (Version None)
Quarter: 2011Q3

REPORT INFORMATION
  Report Type: 
  Country: None (occurrence: None)
  Receive Date: 20110714
  Receipt Date: 20110708
  Transmission Date: 20111222
  Serious: Yes (Hospitalization)
  Sender: FDA-Public Use
  Company Number: CA-BRISTOL-MYERS SQUIBB COMPANY-15829807

PATIENT
  Age: 54 Year
  Sex: Female

DRUGS (5)
  1. VENTOLIN HFA [Concomitant]
     Dates: start: 20110527, end: 20110701
  2. IPILIMUMAB [Suspect]
     Indication: MALIGNANT MELANOMA
     Route: 042
     Dates: start: 20110513
  3. APO-SALVENT [Concomitant]
     Dates: start: 20110527, end: 20110701
  4. DEXAMETHASONE [Concomitant]
     Dates: start: 20110609
  5. FUROSEMIDE [Concomitant]
     Dates: start: 20110609, end: 20110701

REACTIONS (3)
  - NEOPLASM MALIGNANT [None]
  - PAIN [None]
  - HYPERCALCAEMIA [None]
